FAERS Safety Report 16787284 (Version 1)
Quarter: 2019Q3

REPORT INFORMATION
  Report Type: Spontaneous
  Country: IT (occurrence: IT)
  Receive Date: 20190909
  Receipt Date: 20190909
  Transmission Date: 20191005
  Serious: Yes (Hospitalization)
  Sender: FDA-Public Use
  Company Number: IT-ELI_LILLY_AND_COMPANY-IT201909002709

PATIENT
  Age: 65 Year
  Sex: Male

DRUGS (1)
  1. ERBITUX [Suspect]
     Active Substance: CETUXIMAB
     Indication: OROPHARYNGEAL CANCER
     Dosage: 400 MG, UNKNOWN
     Route: 042
     Dates: start: 20190812

REACTIONS (2)
  - Respiratory failure [Recovered/Resolved with Sequelae]
  - Dyspnoea [Recovered/Resolved with Sequelae]

NARRATIVE: CASE EVENT DATE: 20190812
